FAERS Safety Report 13212098 (Version 1)
Quarter: 2017Q1

REPORT INFORMATION
  Report Type: Spontaneous
  Country: US (occurrence: US)
  Receive Date: 20170209
  Receipt Date: 20170209
  Transmission Date: 20170428
  Serious: No
  Sender: FDA-Public Use
  Company Number: US-ALLERGAN-1658662US

PATIENT
  Age: 35 Year
  Sex: Female
  Weight: 58.96 kg

DRUGS (8)
  1. BOTOX COSMETIC [Suspect]
     Active Substance: ONABOTULINUMTOXINA
     Indication: SKIN WRINKLING
     Dosage: 16 UNITS, SINGLE
     Route: 030
     Dates: start: 20160427, end: 20160427
  2. BOTOX COSMETIC [Suspect]
     Active Substance: ONABOTULINUMTOXINA
     Indication: SKIN WRINKLING
     Dosage: 4 UNITS, SINGLE
     Route: 030
     Dates: start: 20160427, end: 20160427
  3. BOTOX COSMETIC [Suspect]
     Active Substance: ONABOTULINUMTOXINA
     Dosage: 4 UNITS, SINGLE
     Route: 030
     Dates: start: 20160127, end: 20160127
  4. BOTOX COSMETIC [Suspect]
     Active Substance: ONABOTULINUMTOXINA
     Dosage: 14 UNITS, SINGLE
     Route: 030
     Dates: start: 20150729, end: 20150729
  5. BOTOX COSMETIC [Suspect]
     Active Substance: ONABOTULINUMTOXINA
     Dosage: 4 UNK, SINGLE
     Route: 030
     Dates: start: 20151029, end: 20151029
  6. BOTOX COSMETIC [Suspect]
     Active Substance: ONABOTULINUMTOXINA
     Dosage: 14 UNITS, SINGLE
     Route: 030
     Dates: start: 20151029, end: 20151029
  7. BOTOX COSMETIC [Suspect]
     Active Substance: ONABOTULINUMTOXINA
     Dosage: 14 UNITS, SINGLE
     Route: 030
     Dates: start: 20160127, end: 20160127
  8. BOTOX COSMETIC [Suspect]
     Active Substance: ONABOTULINUMTOXINA
     Dosage: 4 UNK, SINGLE
     Route: 030
     Dates: start: 20150729, end: 20150729

REACTIONS (3)
  - Swelling [Unknown]
  - Injection site nodule [Recovering/Resolving]
  - Injection site pain [Unknown]

NARRATIVE: CASE EVENT DATE: 20160427
